FAERS Safety Report 8145871-0 (Version None)
Quarter: 2012Q1

REPORT INFORMATION
  Report Type: 
  Country: None (occurrence: None)
  Receive Date: 20120217
  Receipt Date: 20110512
  Transmission Date: 20120608
  Serious: No
  Sender: FDA-Public Use
  Company Number: US-ABBOTT-11P-163-0725318-00

PATIENT
  Sex: Male

DRUGS (2)
  1. VICTOZA [Suspect]
     Indication: OBESITY
     Dates: start: 20110509, end: 20110512
  2. SIMCOR [Suspect]
     Indication: BLOOD CHOLESTEROL INCREASED
     Dates: start: 20110101, end: 20110512

REACTIONS (5)
  - HEART RATE INCREASED [None]
  - ERYTHEMA [None]
  - PARAESTHESIA ORAL [None]
  - BLOOD CHOLESTEROL INCREASED [None]
  - FLUSHING [None]
